FAERS Safety Report 9579459 (Version 2)
Quarter: 2013Q4

REPORT INFORMATION
  Report Type: Spontaneous
  Country: US (occurrence: US)
  Receive Date: 20131001
  Receipt Date: 20131001
  Transmission Date: 20140711
  Serious: No
  Sender: FDA-Public Use
  Company Number: US-AMGEN-USASP2013014973

PATIENT
  Age: 58 Year
  Sex: Female
  Weight: 88.81 kg

DRUGS (17)
  1. ENBREL [Suspect]
     Indication: RHEUMATOID ARTHRITIS
     Dosage: 50 MG, QWK
     Route: 058
     Dates: start: 20130129
  2. GLUCOPHAGE [Concomitant]
     Dosage: 500 MG 2 TABLETS 2 TIMES DAILY
     Route: 048
     Dates: start: 20130327
  3. SYNTHROID [Concomitant]
     Dosage: 50 MCG 1TABLET DAILY ON EMPTY STOMACH AT LEAST 30 MINUTES BEFORE FOOD
     Route: 048
     Dates: start: 20130312
  4. VOLTAREN                           /00372302/ [Concomitant]
     Dosage: 1 %, 4 TIMES DAILY AS NECESSARY, APPLY TO AFFECTED AREA
     Route: 061
     Dates: start: 20130129
  5. PHENERGAN WITH CODEINE             /01129901/ [Concomitant]
     Indication: COUGH
     Dosage: 6.25-10 MG/5 ML, EVERY 4HOURS AS NECESSARY
     Route: 048
     Dates: start: 20130103
  6. NIZORAL [Concomitant]
     Dosage: 2 %, TWICE DAILY IN THE MORNING AND AT BEDTIME
     Route: 061
     Dates: start: 20121211
  7. PLAQUENIL                          /00072602/ [Concomitant]
     Dosage: 200 MG 1TABLET, 2 TIMES DAILY
     Route: 048
     Dates: start: 20121203
  8. NOVOLOG [Concomitant]
     Dosage: 22 UNITS BEFORE BREAKFAST, 22 UNITS BEFORE LUNCH AND 22 UNITS BEFORE DINNER EACH DAY
     Route: 058
     Dates: start: 20121106
  9. LANTUS [Concomitant]
     Dosage: 100 UNIT/ML (3 ML), DAILY
     Route: 058
     Dates: start: 20121106
  10. LASIX                              /00032601/ [Concomitant]
     Dosage: 40MG 1 TABLET, DAILY
     Route: 048
     Dates: start: 20120619
  11. CELEXA                             /00582602/ [Concomitant]
     Dosage: 10 MG, 1 TABLET DAILY
     Route: 048
     Dates: start: 20120619
  12. DILT-XR [Concomitant]
     Dosage: 120 MG, I CAPSULE DAILY
     Route: 048
     Dates: start: 20120619
  13. PLAVIX [Concomitant]
     Dosage: 75 MG,1 TABLET DAILY
     Route: 048
     Dates: start: 20120619
  14. DIOVAN [Concomitant]
     Dosage: 160 MG, 1 TAB DAILY
     Route: 048
     Dates: start: 20120619
  15. CRESTOR [Concomitant]
     Dosage: 20 MG, 1 TAB DAILY
     Route: 048
     Dates: start: 20120619
  16. NITROSTAT [Concomitant]
     Indication: CHEST PAIN
     Dosage: 0.4 MG, AS NECESSARY REPEAT EVERY 5 MINUTES UP TO 3 DOSES IN 15 MINUTES
     Route: 060
     Dates: start: 20120619
  17. GLUCAGON EMERGENCY KIT [Concomitant]
     Dosage: 1 MG, MAY REPEATE IN 20 MINUTES AS NECESSARY
     Route: 058
     Dates: start: 20101209

REACTIONS (3)
  - Hypoaesthesia [Recovering/Resolving]
  - Paraesthesia [Recovering/Resolving]
  - Injection site pain [Not Recovered/Not Resolved]
